FAERS Safety Report 9790150 (Version 3)
Quarter: 2014Q1

REPORT INFORMATION
  Report Type: Report from Study
  Country: US (occurrence: US)
  Receive Date: 20131231
  Receipt Date: 20140110
  Transmission Date: 20141002
  Serious: Yes (Hospitalization)
  Sender: FDA-Public Use
  Company Number: US-ROCHE-1316927

PATIENT
  Age: 83 Year
  Sex: Male

DRUGS (2)
  1. ERIVEDGE [Suspect]
     Indication: BASAL CELL CARCINOMA
     Route: 048
     Dates: start: 201312
  2. ERIVEDGE [Suspect]
     Indication: SKIN CANCER

REACTIONS (5)
  - Balance disorder [Unknown]
  - Fall [Unknown]
  - Rash [Recovering/Resolving]
  - Irritability [Recovering/Resolving]
  - Hypersensitivity [Unknown]
